FAERS Safety Report 7039708-0 (Version None)
Quarter: 2010Q3

REPORT INFORMATION
  Report Type: 
  Country: None (occurrence: None)
  Receive Date: 20100929
  Receipt Date: 20100729
  Transmission Date: 20110219
  Serious: No
  Sender: FDA-Public Use
  Company Number: US-WYE-H16588510

PATIENT
  Sex: Female

DRUGS (3)
  1. PRISTIQ [Suspect]
     Dosage: (50 MG 1X PER 1 DAY) (NOT SPECIFIED) (50 MG 1X PER 2 DAY)
     Dates: start: 20100101, end: 20100101
  2. PRISTIQ [Suspect]
     Dosage: (50 MG 1X PER 1 DAY) (NOT SPECIFIED) (50 MG 1X PER 2 DAY)
     Dates: start: 20100101, end: 20100101
  3. PRISTIQ [Suspect]
     Dosage: (50 MG 1X PER 1 DAY) (NOT SPECIFIED) (50 MG 1X PER 2 DAY)
     Dates: start: 20100601

REACTIONS (3)
  - DRUG WITHDRAWAL SYNDROME [None]
  - FATIGUE [None]
  - MALAISE [None]
